FAERS Safety Report 9269375 (Version 1)
Quarter: 2013Q2

REPORT INFORMATION
  Report Type: Report from Study
  Country: BD (occurrence: BD)
  Receive Date: 20130503
  Receipt Date: 20130503
  Transmission Date: 20140414
  Serious: Yes (Death, Other)
  Sender: FDA-Public Use
  Company Number: PHHY2013BD043300

PATIENT
  Age: 75 Year
  Sex: Female
  Weight: 48 kg

DRUGS (1)
  1. ACLASTA [Suspect]
     Indication: OSTEOPOROSIS
     Dosage: 5 MG IN 100 ML SOLUTION
     Route: 042
     Dates: start: 20090703

REACTIONS (2)
  - Abdominal pain [Fatal]
  - Lower limb fracture [Unknown]
